FAERS Safety Report 6978203-1 (Version None)
Quarter: 2010Q3

REPORT INFORMATION
  Report Type: 
  Country: None (occurrence: None)
  Receive Date: 20100913
  Receipt Date: 20100909
  Transmission Date: 20110219
  Serious: Yes (Hospitalization, Disabling, Other)
  Sender: FDA-Public Use
  Company Number: US-KINGPHARMUSA00001-K201000960

PATIENT
  Sex: Female
  Weight: 59.864 kg

DRUGS (6)
  1. TAPAZOLE [Suspect]
     Dosage: 30 MG, QHS
     Dates: start: 20100412, end: 20100529
  2. TOPAMAX [Concomitant]
     Indication: MIGRAINE
  3. VERAPAMIL HCL [Concomitant]
     Indication: MIGRAINE
     Dosage: 120 MG, UNK
  4. XANAX [Concomitant]
     Dosage: UNK, BID
  5. AMBIEN [Concomitant]
     Indication: INSOMNIA
     Dosage: UNK, QHS
  6. NARCODORM [Concomitant]
     Indication: MULTIPLE SCLEROSIS
     Dosage: 4 DF, UNK

REACTIONS (18)
  - CENTRAL NERVOUS SYSTEM LESION [None]
  - DYSARTHRIA [None]
  - DYSPHAGIA [None]
  - DYSURIA [None]
  - FALL [None]
  - HYPOAESTHESIA [None]
  - LOSS OF CONSCIOUSNESS [None]
  - MENTAL IMPAIRMENT [None]
  - MYDRIASIS [None]
  - NEUROLOGICAL SYMPTOM [None]
  - NEUROPATHY PERIPHERAL [None]
  - PAIN [None]
  - POSTURING [None]
  - SPEECH DISORDER [None]
  - SWELLING [None]
  - VIITH NERVE PARALYSIS [None]
  - VISUAL IMPAIRMENT [None]
  - WEIGHT INCREASED [None]
